FAERS Safety Report 5369542-9 (Version None)
Quarter: 2007Q2

REPORT INFORMATION
  Report Type: 
  Country: None (occurrence: None)
  Receive Date: 20070625
  Receipt Date: 20070615
  Transmission Date: 20071010
  Serious: Yes (Hospitalization)
  Sender: FDA-Public Use
  Company Number: B0476307A

PATIENT
  Age: 48 Year
  Sex: Male

DRUGS (10)
  1. AUGMENTIN '125' [Suspect]
     Indication: ANTIBIOTIC PROPHYLAXIS
     Route: 042
     Dates: start: 20070502, end: 20070502
  2. ULTIVA [Suspect]
     Route: 042
     Dates: start: 20070502, end: 20070502
  3. KETAMINE HCL [Suspect]
     Route: 042
     Dates: start: 20070502, end: 20070502
  4. DIPRIVAN [Suspect]
     Route: 042
     Dates: start: 20070502, end: 20070502
  5. LIDOCAINE [Suspect]
     Route: 060
     Dates: start: 20070502, end: 20070502
  6. TENORMIN [Concomitant]
     Dosage: 50MG UNKNOWN
     Route: 048
  7. ATARAX [Concomitant]
     Dosage: 100MG UNKNOWN
     Route: 065
  8. BETADINE [Concomitant]
     Dates: start: 20070502, end: 20070502
  9. LATEX [Concomitant]
     Dates: start: 20070502, end: 20070502
  10. INHIBITORS OF PLATELET AGGREGATION [Concomitant]

REACTIONS (8)
  - ANAPHYLACTIC SHOCK [None]
  - BLOOD PRESSURE IMMEASURABLE [None]
  - BLOOD PRESSURE SYSTOLIC DECREASED [None]
  - CIRCULATORY COLLAPSE [None]
  - GENERALISED ERYTHEMA [None]
  - RALES [None]
  - RESPIRATORY DISORDER [None]
  - TACHYCARDIA [None]
